FAERS Safety Report 19681670 (Version 2)
Quarter: 2021Q3

REPORT INFORMATION
  Report Type: Report from Study
  Country: US (occurrence: US)
  Receive Date: 20210810
  Receipt Date: 20210906
  Transmission Date: 20211014
  Serious: Yes (Hospitalization)
  Sender: FDA-Public Use
  Company Number: US-JNJFOC-20210806352

PATIENT
  Age: 73 Year
  Sex: Female
  Weight: 80.5 kg

DRUGS (1)
  1. UPTRAVI [Suspect]
     Active Substance: SELEXIPAG
     Indication: PULMONARY ARTERIAL HYPERTENSION
     Route: 048

REACTIONS (3)
  - Sepsis [Unknown]
  - Septic shock [Unknown]
  - Fluid retention [Unknown]

NARRATIVE: CASE EVENT DATE: 20210725
